FAERS Safety Report 11360750 (Version 2)
Quarter: 2015Q3

REPORT INFORMATION
  Report Type: Spontaneous
  Country: MY (occurrence: MY)
  Receive Date: 20150810
  Receipt Date: 20150826
  Transmission Date: 20151125
  Serious: Yes (Death, Other)
  Sender: FDA-Public Use
  Company Number: MY-SA-2015SA118374

PATIENT
  Age: 3 Year
  Sex: Female

DRUGS (3)
  1. CYTARABINE. [Concomitant]
     Active Substance: CYTARABINE
  2. EVOLTRA [Suspect]
     Active Substance: CLOFARABINE
     Indication: ACUTE MYELOID LEUKAEMIA
     Route: 041
     Dates: start: 20150703, end: 20150703
  3. EVOLTRA [Suspect]
     Active Substance: CLOFARABINE
     Indication: ACUTE MYELOID LEUKAEMIA
     Route: 041
     Dates: start: 20150704, end: 20150707

REACTIONS (4)
  - Leukaemia recurrent [Fatal]
  - Acute myeloid leukaemia [Fatal]
  - Angioedema [Unknown]
  - Sepsis [Fatal]

NARRATIVE: CASE EVENT DATE: 20150703
